FAERS Safety Report 5255173-8 (Version None)
Quarter: 2007Q1

REPORT INFORMATION
  Report Type: 
  Country: None (occurrence: None)
  Receive Date: 20070228
  Receipt Date: 20070216
  Transmission Date: 20070707
  Serious: Yes (Disabling)
  Sender: FDA-Public Use
  Company Number: 2007JP000536

PATIENT
  Age: 33 Year
  Sex: Female
  Weight: 51.7 kg

DRUGS (15)
  1. PROGRAF [Suspect]
     Indication: CORNEAL TRANSPLANT
     Dosage: SEE IMAGE
     Route: 048
  2. CELLCEPT [Concomitant]
  3. RINDERON TABLET [Concomitant]
  4. THYRADIN S (LEVOTHYROXINE SODIUM) TABLET [Concomitant]
  5. LEXOTAN (BROMAZEPAM) TABLET [Concomitant]
  6. ALPRAZOLAM [Concomitant]
  7. DEPROMEL (FLUVOXAMINE) TABLET [Concomitant]
  8. ZOLPIDEM TARTRATE [Concomitant]
  9. RESLIN (TRAZODONE HYDROCHLORIDE) TABLET [Concomitant]
  10. DORAL (QUAZEPAM) TABLET [Concomitant]
  11. CONTOMIN (CHLORPROMAZINE HYDROCHLORIDE) POWDER [Concomitant]
  12. XALATAN (LATANOPROST) EYE DROP [Concomitant]
  13. CRAVIT (LEVOFLOXACIN) EYE DROP [Concomitant]
  14. RINDERON EYE DROP [Concomitant]
  15. TARIVID (OFLOXACIN HYDROCHLORIDE) EYE OINTMENT [Concomitant]

REACTIONS (2)
  - CONVULSION [None]
  - DEPRESSED LEVEL OF CONSCIOUSNESS [None]
